FAERS Safety Report 4378651-2 (Version None)
Quarter: 2004Q2

REPORT INFORMATION
  Report Type: 
  Country: None (occurrence: None)
  Receive Date: 20040610
  Receipt Date: 20040602
  Transmission Date: 20050107
  Serious: No
  Sender: FDA-Public Use
  Company Number: 2004-04-1053

PATIENT
  Age: 62 Year
  Sex: Male
  Weight: 74 kg

DRUGS (6)
  1. REBETOL [Suspect]
     Indication: HEPATITIS C
     Dosage: 800 MG QD ORAL; 600 MG QD ORAL
     Route: 048
     Dates: start: 20040127, end: 20040406
  2. REBETOL [Suspect]
     Indication: HEPATITIS C
     Dosage: 800 MG QD ORAL; 600 MG QD ORAL
     Route: 048
     Dates: start: 20040407, end: 20040412
  3. INTRON A [Suspect]
     Indication: HEPATITIS C
     Dosage: 6 MU QD INTRAMUSCULAR; 8 MU TIW INTRAMUSCULAR
     Route: 030
     Dates: start: 20040127, end: 20040208
  4. INTRON A [Suspect]
     Indication: HEPATITIS C
     Dosage: 6 MU QD INTRAMUSCULAR; 8 MU TIW INTRAMUSCULAR
     Route: 030
     Dates: start: 20040210
  5. CILNIDIPINE [Concomitant]
  6. .. [Concomitant]

REACTIONS (4)
  - ABDOMINAL PAIN [None]
  - ANAEMIA [None]
  - GLYCOSYLATED HAEMOGLOBIN DECREASED [None]
  - REFLUX OESOPHAGITIS [None]
